FAERS Safety Report 4915608-4 (Version None)
Quarter: 2006Q1

REPORT INFORMATION
  Report Type: 
  Country: None (occurrence: None)
  Receive Date: 20060217
  Receipt Date: 20051003
  Transmission Date: 20060701
  Serious: Yes (Hospitalization, Other)
  Sender: FDA-Public Use
  Company Number: US-MERCK-0510USA02589

PATIENT
  Age: 39 Year
  Sex: Male
  Weight: 116 kg

DRUGS (3)
  1. VIOXX [Suspect]
     Indication: PAIN MANAGEMENT
     Route: 048
     Dates: start: 20010101, end: 20021113
  2. VIOXX [Suspect]
     Indication: EPICONDYLITIS
     Route: 048
     Dates: start: 20010101, end: 20021113
  3. NEXIUM [Concomitant]
     Route: 065

REACTIONS (8)
  - BRONCHITIS ACUTE [None]
  - CHEST PAIN [None]
  - EMOTIONAL DISORDER [None]
  - EPICONDYLITIS [None]
  - MENTAL DISORDER [None]
  - MYOCARDIAL INFARCTION [None]
  - PLEURISY [None]
  - ROAD TRAFFIC ACCIDENT [None]
